FAERS Safety Report 6260229-7 (Version None)
Quarter: 2009Q3

REPORT INFORMATION
  Report Type: 
  Country: None (occurrence: None)
  Receive Date: 20090708
  Receipt Date: 20090626
  Transmission Date: 20100115
  Serious: Yes (Hospitalization, Other)
  Sender: FDA-Public Use
  Company Number: BE-WYE-H09911309

PATIENT
  Sex: Male

DRUGS (3)
  1. PROGRAF [Suspect]
     Indication: PROPHYLAXIS AGAINST TRANSPLANT REJECTION
     Dosage: 1 MG - 0.5 MG TWICE DAILY
     Route: 048
     Dates: start: 20070224
  2. URSOBIL [Concomitant]
     Dosage: TWICE A DAY
     Route: 048
  3. CONTRAMAL [Concomitant]
     Indication: PAIN
     Dosage: TWICE A DAY
     Route: 048

REACTIONS (1)
  - LUNG NEOPLASM MALIGNANT [None]
